FAERS Safety Report 20462206 (Version 1)
Quarter: 2022Q1

REPORT INFORMATION
  Report Type: Spontaneous
  Country: US (occurrence: US)
  Receive Date: 20220211
  Receipt Date: 20220211
  Transmission Date: 20220423
  Serious: No
  Sender: FDA-Public Use
  Company Number: US-EPIHEALTH-2021-US-025392

PATIENT
  Age: 16 Year
  Sex: Female
  Weight: 47.63 kg

DRUGS (2)
  1. RHOFADE [Suspect]
     Active Substance: OXYMETAZOLINE HYDROCHLORIDE
     Indication: Rosacea
     Dosage: APPLIES TO FACE 1 TIME A DAY
     Route: 061
     Dates: start: 202004
  2. Unspecified ADHD medication [Concomitant]

REACTIONS (2)
  - Application site pain [Not Recovered/Not Resolved]
  - Rosacea [Not Recovered/Not Resolved]

NARRATIVE: CASE EVENT DATE: 20210401
